FAERS Safety Report 7244398-8 (Version None)
Quarter: 2011Q1

REPORT INFORMATION
  Report Type: 
  Country: None (occurrence: None)
  Receive Date: 20110125
  Receipt Date: 20110120
  Transmission Date: 20110831
  Serious: Yes (Hospitalization)
  Sender: FDA-Public Use
  Company Number: JP-ABBOTT-11P-087-0699848-00

PATIENT
  Age: 37 Year
  Sex: Male

DRUGS (19)
  1. ISCOTIN [Concomitant]
     Indication: PERICARDITIS TUBERCULOUS
     Dates: start: 20090831
  2. ZITHROMAX [Suspect]
     Indication: OPPORTUNISTIC INFECTION PROPHYLAXIS
     Dates: start: 20091214
  3. DAIPHEN [Concomitant]
     Indication: PROPHYLAXIS
  4. EBUTOL [Concomitant]
     Indication: LYMPH NODE TUBERCULOSIS
  5. VALGANCICLOVIR [Suspect]
     Indication: CYTOMEGALOVIRUS CHORIORETINITIS
     Route: 048
     Dates: start: 20100215
  6. MYCOBUTIN [Suspect]
     Indication: PERICARDITIS TUBERCULOUS
     Route: 048
     Dates: start: 20091204
  7. RENIVACE [Concomitant]
     Indication: CARDIAC FAILURE
  8. PYDOXAL [Concomitant]
     Indication: PERICARDITIS TUBERCULOUS
     Dates: start: 20090831
  9. PYDOXAL [Concomitant]
     Indication: LYMPH NODE TUBERCULOSIS
  10. RENIVACE [Concomitant]
     Indication: ATRIAL FIBRILLATION
     Dates: start: 20090903
  11. DIGOXIN [Concomitant]
     Indication: ATRIAL FIBRILLATION
     Dates: start: 20091005
  12. DIGOXIN [Concomitant]
     Indication: CARDIAC FAILURE
  13. KALETRA [Suspect]
     Indication: HIV INFECTION
     Route: 048
     Dates: start: 20091204
  14. MYCOBUTIN [Suspect]
     Indication: LYMPH NODE TUBERCULOSIS
  15. MIGLITOL [Concomitant]
     Indication: TYPE 2 DIABETES MELLITUS
     Dates: start: 20090926
  16. TRUVADA [Suspect]
     Indication: HIV INFECTION
     Route: 048
     Dates: start: 20091204
  17. DAIPHEN [Concomitant]
     Indication: PNEUMOCYSTIS JIROVECI PNEUMONIA
     Route: 048
     Dates: start: 20090828
  18. ISCOTIN [Concomitant]
     Indication: LYMPH NODE TUBERCULOSIS
  19. EBUTOL [Concomitant]
     Indication: PERICARDITIS TUBERCULOUS
     Dates: start: 20090831

REACTIONS (3)
  - GAMMA-GLUTAMYLTRANSFERASE INCREASED [None]
  - IMMUNE RECONSTITUTION SYNDROME [None]
  - CYTOMEGALOVIRUS CHORIORETINITIS [None]
